FAERS Safety Report 6054367-1 (Version None)
Quarter: 2009Q1

REPORT INFORMATION
  Report Type: 
  Country: None (occurrence: None)
  Receive Date: 20090123
  Receipt Date: 20090123
  Transmission Date: 20090719
  Serious: No
  Sender: FDA-Public Use
  Company Number: None

PATIENT
  Age: 34 Year
  Sex: Female
  Weight: 78.4723 kg

DRUGS (2)
  1. MELOXICAM [Suspect]
     Indication: EXOSTOSIS
     Dosage: 15MG 1 A DAY PO
     Route: 048
     Dates: start: 20090120
  2. MELOXICAM [Suspect]
     Indication: EXOSTOSIS
     Dosage: 15MG 1 A DAY PO
     Route: 048
     Dates: start: 20090121

REACTIONS (2)
  - PARAESTHESIA [None]
  - PARAESTHESIA ORAL [None]
